FAERS Safety Report 7528950-8 (Version None)
Quarter: 2011Q2

REPORT INFORMATION
  Report Type: 
  Country: None (occurrence: None)
  Receive Date: 20110607
  Receipt Date: 20110526
  Transmission Date: 20111010
  Serious: Yes (Other)
  Sender: FDA-Public Use
  Company Number: ES-JNJFOC-20110512618

PATIENT
  Age: 64 Year
  Sex: Female

DRUGS (5)
  1. POLARAMINE [Concomitant]
     Indication: PRODUCT USED FOR UNKNOWN INDICATION
     Route: 040
     Dates: start: 20100929, end: 20100929
  2. ONDANSETRON [Concomitant]
     Indication: PRODUCT USED FOR UNKNOWN INDICATION
     Route: 042
     Dates: start: 20100929, end: 20100929
  3. EMEND [Concomitant]
     Indication: PRODUCT USED FOR UNKNOWN INDICATION
     Route: 048
     Dates: start: 20100929, end: 20100929
  4. FORTECORTIN INJECTABLE SOLUTION [Concomitant]
     Indication: PRODUCT USED FOR UNKNOWN INDICATION
     Route: 042
     Dates: start: 20100929, end: 20100929
  5. DOXORUBICIN HCL [Suspect]
     Indication: BREAST CANCER
     Dosage: STRENGTH 2MG/ML
     Route: 042
     Dates: start: 20100929, end: 20100929

REACTIONS (5)
  - HYPERTENSION [None]
  - OXYGEN SATURATION DECREASED [None]
  - INFUSION RELATED REACTION [None]
  - RESPIRATORY DISTRESS [None]
  - BACK PAIN [None]
